FAERS Safety Report 7564411-8 (Version None)
Quarter: 2011Q2

REPORT INFORMATION
  Report Type: 
  Country: None (occurrence: None)
  Receive Date: 20110622
  Receipt Date: 20110610
  Transmission Date: 20111010
  Serious: Yes (Other)
  Sender: FDA-Public Use
  Company Number: PHHY2011DE52254

PATIENT
  Age: 59 Year
  Sex: Female

DRUGS (3)
  1. ZOMETA [Suspect]
     Dosage: UNK
     Route: 042
     Dates: start: 20060328, end: 20080801
  2. ALENDRONATE SODIUM [Suspect]
     Dosage: UNK
     Route: 048
     Dates: start: 20080801, end: 20100601
  3. CORTISONE [Concomitant]

REACTIONS (2)
  - FISTULA [None]
  - OSTEONECROSIS OF JAW [None]
